FAERS Safety Report 4808666-9 (Version None)
Quarter: 2005Q4

REPORT INFORMATION
  Report Type: 
  Country: None (occurrence: None)
  Receive Date: 20051021
  Receipt Date: 20010827
  Transmission Date: 20060501
  Serious: No
  Sender: FDA-Public Use
  Company Number: DE_010806643

PATIENT
  Age: 27 Year
  Sex: Female

DRUGS (2)
  1. ZYPREXA [Suspect]
     Indication: DELUSIONAL DISORDER, PERSECUTORY TYPE
     Dosage: 7.5 MG/2 DAY
     Dates: start: 20001205, end: 20010529
  2. ZYPREXA [Suspect]
     Indication: HALLUCINATION
     Dosage: 7.5 MG/2 DAY
     Dates: start: 20001205, end: 20010529

REACTIONS (1)
  - LYMPHOPENIA [None]
